FAERS Safety Report 4681882-5 (Version None)
Quarter: 2005Q2

REPORT INFORMATION
  Report Type: 
  Country: None (occurrence: None)
  Receive Date: 20050602
  Receipt Date: 20050517
  Transmission Date: 20051028
  Serious: Yes (Hospitalization)
  Sender: FDA-Public Use
  Company Number: EWC050142268

PATIENT
  Age: 61 Year
  Sex: Female

DRUGS (7)
  1. FLUOXETINE [Suspect]
     Indication: DEPRESSION
     Dosage: 10MG/1 DAY
     Dates: start: 20041123, end: 20041220
  2. FLUOXETINE [Suspect]
     Indication: DISEASE RECURRENCE
     Dosage: 10MG/1 DAY
     Dates: start: 20041123, end: 20041220
  3. FLUOXETIN MEPHA (FLUOXETINE HYDROCHLORIDE) [Concomitant]
  4. SEROQUEL [Concomitant]
  5. BENERVA (THIAMINE HYDROCHLORIDE) [Concomitant]
  6. BEROCCA CALCIUM, MAGNESIUM ZINC [Concomitant]
  7. CELEBREX [Concomitant]

REACTIONS (1)
  - STATUS EPILEPTICUS [None]
